FAERS Safety Report 5966830-X (Version None)
Quarter: 2008Q4

REPORT INFORMATION
  Report Type: 
  Country: None (occurrence: None)
  Receive Date: 20081125
  Receipt Date: 20081118
  Transmission Date: 20090506
  Serious: Yes (Hospitalization, Other)
  Sender: FDA-Public Use
  Company Number: US-ROXANE LABORATORIES, INC.-2008-RO-00244RO

PATIENT
  Age: 33 Year
  Sex: Male

DRUGS (10)
  1. DEXAMETHASONE 0.5MG TAB [Suspect]
     Indication: ANAPLASTIC ASTROCYTOMA
  2. DEXAMETHASONE 0.5MG TAB [Suspect]
  3. TEMOZOLOMIDE [Suspect]
     Indication: ANAPLASTIC ASTROCYTOMA
  4. LOMUSTINE [Suspect]
     Indication: ANAPLASTIC ASTROCYTOMA
  5. COUMADIN [Suspect]
     Indication: PULMONARY EMBOLISM
  6. AMPHOTERICIN B [Suspect]
     Indication: MENINGITIS CRYPTOCOCCAL
  7. FLUCYTOSINE [Suspect]
     Indication: MENINGITIS CRYPTOCOCCAL
  8. ABELCET [Suspect]
     Indication: MENINGITIS CRYPTOCOCCAL
  9. FLUCONAZOLE [Concomitant]
     Indication: MENINGITIS CRYPTOCOCCAL
     Dosage: 800MG
  10. FLUCONAZOLE [Concomitant]

REACTIONS (10)
  - BLINDNESS [None]
  - DEAFNESS UNILATERAL [None]
  - DYSARTHRIA [None]
  - MENINGITIS CRYPTOCOCCAL [None]
  - NEUROPATHY PERIPHERAL [None]
  - OPTIC ATROPHY [None]
  - PARAESTHESIA [None]
  - PULMONARY EMBOLISM [None]
  - SEPSIS [None]
  - TINNITUS [None]
